FAERS Safety Report 19877571 (Version 4)
Quarter: 2021Q4

REPORT INFORMATION
  Report Type: Spontaneous
  Country: US (occurrence: US)
  Receive Date: 20210924
  Receipt Date: 20211026
  Transmission Date: 20220303
  Serious: No
  Sender: FDA-Public Use
  Company Number: US-ELI_LILLY_AND_COMPANY-US202109009431

PATIENT

DRUGS (1)
  1. TRULICITY [Suspect]
     Active Substance: DULAGLUTIDE
     Indication: Product used for unknown indication
     Dosage: UNK UNK, UNKNOWN
     Route: 065

REACTIONS (13)
  - Headache [Recovering/Resolving]
  - Illness [Recovering/Resolving]
  - Chest pain [Unknown]
  - Dizziness [Unknown]
  - Infection [Unknown]
  - Memory impairment [Unknown]
  - Blood glucose increased [Recovered/Resolved]
  - Blood pressure increased [Recovered/Resolved]
  - Arthritis [Unknown]
  - Abdominal distension [Recovering/Resolving]
  - Constipation [Recovering/Resolving]
  - Abdominal pain [Unknown]
  - Fatigue [Recovering/Resolving]
